FAERS Safety Report 7009327-0 (Version None)
Quarter: 2010Q3

REPORT INFORMATION
  Report Type: 
  Country: None (occurrence: None)
  Receive Date: 20100921
  Receipt Date: 20100908
  Transmission Date: 20110219
  Serious: Yes (Life-Threatening, Hospitalization)
  Sender: FDA-Public Use
  Company Number: CTI_01236_2010

PATIENT
  Age: 55 Year
  Sex: Female

DRUGS (3)
  1. MEIACT (MEIACT MS (CEFDITOREN PIVOXIL)) [Suspect]
     Indication: RESPIRATORY TRACT INFECTION
     Dosage: (300 MG  ORAL)
     Route: 048
     Dates: start: 20100715, end: 20100717
  2. NON-PYRAZOLONE COLD DRUG [Concomitant]
  3. TRANEXAMIC ACID [Concomitant]

REACTIONS (1)
  - PANCYTOPENIA [None]
